FAERS Safety Report 7870427-4 (Version None)
Quarter: 2011Q4

REPORT INFORMATION
  Report Type: 
  Country: None (occurrence: None)
  Receive Date: 20111029
  Receipt Date: 20110309
  Transmission Date: 20120403
  Serious: No
  Sender: FDA-Public Use
  Company Number: US-AMGEN-USASP2011013338

PATIENT
  Age: 47 Year
  Sex: Male

DRUGS (2)
  1. ENBREL [Suspect]
     Indication: RHEUMATOID ARTHRITIS
     Dosage: 50 MG, QWK
     Dates: start: 20100129
  2. REMICADE [Concomitant]
     Dosage: UNK

REACTIONS (4)
  - INFLUENZA LIKE ILLNESS [None]
  - DYSGEUSIA [None]
  - VOMITING [None]
  - NO THERAPEUTIC RESPONSE [None]
